FAERS Safety Report 23402994 (Version 1)
Quarter: 2024Q1

REPORT INFORMATION
  Report Type: Report from Study
  Country: CH (occurrence: CH)
  Receive Date: 20240115
  Receipt Date: 20240115
  Transmission Date: 20240409
  Serious: Yes (Hospitalization)
  Sender: FDA-Public Use
  Company Number: CH-ABBVIE-5585159

PATIENT
  Age: 76 Year
  Sex: Male

DRUGS (2)
  1. CARBIDOPA\LEVODOPA [Suspect]
     Active Substance: CARBIDOPA\LEVODOPA
     Indication: Parkinson^s disease
     Dosage: MD: 6.0 ML, CRD: 5.0ML/H, ED: 2.0 ML, ?FREQUENCY TEXT: 16H THERAPY
     Route: 050
     Dates: start: 20240104, end: 20240108
  2. CARBIDOPA\LEVODOPA [Suspect]
     Active Substance: CARBIDOPA\LEVODOPA
     Dosage: MD: 4.5ML, CRD: 4.7ML/H, ED: 2.0 ML, CRN: 3.0 ML/H, ?FREQUENCY TEXT: 24H THERAPY
     Route: 050
     Dates: start: 20240108

REACTIONS (2)
  - Infection [Not Recovered/Not Resolved]
  - Delirium [Not Recovered/Not Resolved]

NARRATIVE: CASE EVENT DATE: 20240101
